FAERS Safety Report 8937161 (Version 1)
Quarter: 2012Q4

REPORT INFORMATION
  Report Type: Spontaneous
  Country: US (occurrence: None)
  Receive Date: 20121128
  Receipt Date: 20121128
  Transmission Date: 20130627
  Serious: Yes (Other)
  Sender: FDA-Public Use
  Company Number: None

PATIENT
  Age: 72 Year
  Sex: Female
  Weight: 78.02 kg

DRUGS (2)
  1. FENOFIBRATE [Suspect]
     Indication: HIGH CHOLESTEROL
     Dosage: April 2012 - 07-18-12
54 mgs daily daily p.o
     Route: 048
     Dates: start: 201204, end: 20120718
  2. TRICOR [Suspect]
     Dosage: 145 mg daily  daily  P.O
     Route: 048
     Dates: start: 20120718

REACTIONS (8)
  - Back pain [None]
  - Gait disturbance [None]
  - Nausea [None]
  - Arthralgia [None]
  - Dizziness [None]
  - Chromaturia [None]
  - Arthralgia [None]
  - Myalgia [None]
